FAERS Safety Report 7420424-8 (Version None)
Quarter: 2011Q2

REPORT INFORMATION
  Report Type: 
  Country: None (occurrence: None)
  Receive Date: 20110418
  Receipt Date: 20110406
  Transmission Date: 20111010
  Serious: Yes (Other)
  Sender: FDA-Public Use
  Company Number: BR-AMGEN-BRASP2011019468

PATIENT
  Age: 58 Year
  Sex: Male
  Weight: 72 kg

DRUGS (4)
  1. ENBREL [Suspect]
     Indication: RHEUMATOID ARTHRITIS
     Dosage: 50 MG, 1X/DAY
     Route: 058
     Dates: start: 20101220
  2. COLCHICINE [Concomitant]
     Dosage: 0.5 MG, 1X/DAY
     Dates: start: 20070101
  3. METHOTREXATE [Concomitant]
     Indication: ARTHRITIS
     Dosage: 15 MG, 1X/DAY
     Dates: start: 20100901
  4. ENALAPRIL [Concomitant]
     Indication: HYPERTENSION
     Dosage: 20 MG, 1X/DAY
     Dates: start: 20080101

REACTIONS (7)
  - FORMICATION [None]
  - MUSCULOSKELETAL STIFFNESS [None]
  - POOR QUALITY DRUG ADMINISTERED [None]
  - JOINT SWELLING [None]
  - INSOMNIA [None]
  - MUSCLE RIGIDITY [None]
  - ARTHRALGIA [None]
